FAERS Safety Report 7967973-1 (Version None)
Quarter: 2011Q4

REPORT INFORMATION
  Report Type: 
  Country: None (occurrence: None)
  Receive Date: 20111207
  Receipt Date: 20111122
  Transmission Date: 20120403
  Serious: Yes (Hospitalization)
  Sender: FDA-Public Use
  Company Number: 2011AP002797

PATIENT
  Age: 60 Year
  Sex: Female

DRUGS (8)
  1. OMEPRAZOLE [Suspect]
     Dosage: 20 MG;PO;QD
     Route: 048
     Dates: start: 20110817
  2. RAMIPRIL [Suspect]
     Indication: HYPERTENSION
     Dosage: 2.5 MG;PO;QD
     Route: 048
     Dates: start: 20110801
  3. ADRENALIN IN OIL INJ [Concomitant]
  4. FESOTERODINE (FESOTERODINE) [Concomitant]
  5. CHLORPHENIRAMINE MALEATE [Concomitant]
  6. CORTISTEROIDS (CORTICOSTEROIDS [Concomitant]
  7. METRONIDAZOLE [Concomitant]
  8. AMOXICILLIN [Concomitant]

REACTIONS (1)
  - RHABDOMYOLYSIS [None]
